FAERS Safety Report 6764251-3 (Version None)
Quarter: 2010Q2

REPORT INFORMATION
  Report Type: 
  Country: None (occurrence: None)
  Receive Date: 20100608
  Receipt Date: 20100601
  Transmission Date: 20101027
  Serious: Yes (Other)
  Sender: FDA-Public Use
  Company Number: 012942

PATIENT
  Age: 42 Year
  Sex: Female
  Weight: 50 kg

DRUGS (6)
  1. XUSAL (XUSAL) [Suspect]
     Dosage: (7 TABLETS/35MG ORAL)
     Route: 048
  2. DOXEPIN HCL [Suspect]
     Dosage: (10 TABLETS/ 250 MG ORAL)
     Route: 048
  3. ACETAMINOPHEN [Suspect]
     Dosage: (16 TABLETS/ 8000 MG ORAL)
     Route: 048
  4. CITALOPRAM HYDROBROMIDE [Suspect]
     Dosage: (7 TABLETS 140MG ORAL)
     Route: 048
  5. IBUPROFEN [Suspect]
     Dosage: (9 TABLETS. 3600 MG ORAL)
     Route: 048
  6. ALCOHOL /00002101/ (BEER / WINE) [Suspect]
     Dosage: (1/2 BOTTLE ORAL)
     Route: 048

REACTIONS (2)
  - INCORRECT DOSE ADMINISTERED [None]
  - SUICIDE ATTEMPT [None]
